FAERS Safety Report 4899949-5 (Version None)
Quarter: 2006Q1

REPORT INFORMATION
  Report Type: 
  Country: None (occurrence: None)
  Receive Date: 20060201
  Receipt Date: 20060116
  Transmission Date: 20060701
  Serious: Yes (Hospitalization)
  Sender: FDA-Public Use
  Company Number: US_0508120750

PATIENT
  Age: 63 Year
  Sex: Male
  Weight: 94.5 kg

DRUGS (17)
  1. HUMATROPE [Suspect]
     Indication: GROWTH HORMONE DEFICIENCY
     Dosage: 0.3 MG, DAILY (1/D), SUBCUTANEOUS
     Route: 058
     Dates: start: 20031112, end: 20040630
  2. SYNTHROID [Concomitant]
  3. MESTINON /CAN/ (PYRIDOSTIGMINE BROMIDE) [Concomitant]
  4. ZYLOPRIM [Concomitant]
  5. PREDNISONE [Concomitant]
  6. NEURONTIN [Concomitant]
  7. TOPROL-XL [Concomitant]
  8. IMDUR [Concomitant]
  9. ASA (ASPIRIN (ACETYLSALICYLIC ACID) UNKNOWN FORMULATION) [Concomitant]
  10. GLUCOPHAGE [Concomitant]
  11. NIASPAN [Concomitant]
  12. ANDRODERM [Concomitant]
  13. LESCOL XL [Concomitant]
  14. AMARYL /SWE/ (GLIMEPIRIDE) [Concomitant]
  15. ZETIA [Concomitant]
  16. LASIX [Concomitant]
  17. NORVASC /DEN/ (AMLODIPINE BESILATE) [Concomitant]

REACTIONS (4)
  - ROAD TRAFFIC ACCIDENT [None]
  - SPINAL COMPRESSION FRACTURE [None]
  - SPINAL CORD COMPRESSION [None]
  - SPINAL CORD OEDEMA [None]
